FAERS Safety Report 5664563-0 (Version None)
Quarter: 2008Q1

REPORT INFORMATION
  Report Type: 
  Country: None (occurrence: None)
  Receive Date: 20080314
  Receipt Date: 20080313
  Transmission Date: 20080703
  Serious: Yes (Other)
  Sender: FDA-Public Use
  Company Number: TH-JNJFOC-20080300973

PATIENT
  Sex: Male
  Weight: 51.7 kg

DRUGS (9)
  1. TMC114 [Suspect]
     Route: 048
  2. TMC114 [Suspect]
     Indication: HIV INFECTION
     Route: 048
  3. RITONAVIR [Suspect]
     Indication: HIV INFECTION
     Route: 048
  4. KALETRA [Concomitant]
     Indication: HIV INFECTION
     Dosage: DOSE 400/100 MG
     Route: 048
  5. RETROVIR [Concomitant]
     Route: 048
  6. RETROVIR [Concomitant]
     Indication: HIV INFECTION
     Route: 048
  7. VIREAD [Concomitant]
     Route: 048
  8. VIREAD [Concomitant]
     Indication: HIV INFECTION
     Route: 048
  9. COTRIMOXAZOLE [Concomitant]
     Indication: ANTIFUNGAL PROPHYLAXIS
     Route: 048

REACTIONS (1)
  - ALANINE AMINOTRANSFERASE INCREASED [None]
